FAERS Safety Report 7910599-6 (Version None)
Quarter: 2011Q4

REPORT INFORMATION
  Report Type: 
  Country: None (occurrence: None)
  Receive Date: 20111111
  Receipt Date: 20111109
  Transmission Date: 20120403
  Serious: Yes (Death, Hospitalization)
  Sender: FDA-Public Use
  Company Number: PHHY2011BE56888

PATIENT
  Sex: Male

DRUGS (13)
  1. ANAGRELIDE HYDROCHLORIDE [Concomitant]
     Dosage: 0.5 MG 2 TABLETS THRICE DAILY
     Dates: start: 20060101
  2. ASAFLOW [Concomitant]
     Indication: CARDIOVASCULAR DISORDER
  3. SIPRALEXA [Concomitant]
     Dosage: DAILY DOSE OF 0.5 TABLET 10 MG
  4. HYDREA [Concomitant]
     Indication: ESSENTIAL THROMBOCYTHAEMIA
     Dosage: 500 MG, QD
     Dates: start: 20020101, end: 20060101
  5. SYMBICORT [Concomitant]
     Indication: CHRONIC OBSTRUCTIVE PULMONARY DISEASE
     Dosage: 9/320 MG
  6. CACIT VITAMINE D3 [Concomitant]
     Indication: BONE DISORDER
     Dosage: 1000/800
  7. DUOVENT [Concomitant]
     Indication: CHRONIC OBSTRUCTIVE PULMONARY DISEASE
  8. PANTOPRAZOLE [Concomitant]
  9. SPIRIVA [Concomitant]
     Indication: CHRONIC OBSTRUCTIVE PULMONARY DISEASE
     Dosage: 18 UG, QD
  10. ONBREZ [Suspect]
     Indication: CHRONIC OBSTRUCTIVE PULMONARY DISEASE
     Dates: start: 20110501
  11. BUMETANIDE [Concomitant]
     Indication: CARDIAC FAILURE
  12. CETIRIZINE HCL [Concomitant]
     Dosage: 10 MG, QD
  13. MEDROL [Concomitant]
     Dosage: 16 MG, QD

REACTIONS (23)
  - FALL [None]
  - RESPIRATORY DISORDER [None]
  - ASTHMA [None]
  - INTERSTITIAL LUNG DISEASE [None]
  - KLEBSIELLA INFECTION [None]
  - PSEUDOMONAS INFECTION [None]
  - TRICUSPID VALVE DISEASE [None]
  - RENAL FAILURE [None]
  - GOUTY ARTHRITIS [None]
  - MITRAL VALVE DISEASE [None]
  - ERYTHEMA [None]
  - GENERAL PHYSICAL HEALTH DETERIORATION [None]
  - CARDIAC FAILURE [None]
  - RALES [None]
  - SYNOVITIS [None]
  - PUBIS FRACTURE [None]
  - PULMONARY HYPERTENSION [None]
  - DIASTOLIC DYSFUNCTION [None]
  - ATRIAL FIBRILLATION [None]
  - DEATH [None]
  - PRODUCTIVE COUGH [None]
  - DYSPNOEA [None]
  - OEDEMA PERIPHERAL [None]
